FAERS Safety Report 9919799 (Version 5)
Quarter: 2014Q2

REPORT INFORMATION
  Report Type: Spontaneous
  Country: US (occurrence: US)
  Receive Date: 20140224
  Receipt Date: 20140605
  Transmission Date: 20141212
  Serious: Yes (Death)
  Sender: FDA-Public Use
  Company Number: US-PFIZER INC-2014036398

PATIENT
  Age: 51 Year
  Sex: Female

DRUGS (1)
  1. LYRICA [Suspect]
     Indication: PAIN
     Dosage: UNK

REACTIONS (5)
  - Mesothelioma [Fatal]
  - Disease progression [Fatal]
  - Malaise [Unknown]
  - Therapeutic response changed [Unknown]
  - Pre-existing condition improved [Unknown]
